FAERS Safety Report 21920332 (Version 1)
Quarter: 2023Q1

REPORT INFORMATION
  Report Type: Spontaneous
  Country: US (occurrence: US)
  Receive Date: 20230127
  Receipt Date: 20230127
  Transmission Date: 20230418
  Serious: No
  Sender: FDA-Public Use
  Company Number: US-SA-SAC20230124001743

PATIENT
  Sex: Female

DRUGS (1)
  1. AUBAGIO [Suspect]
     Active Substance: TERIFLUNOMIDE
     Indication: Multiple sclerosis
     Dosage: 14 MG, QD
     Route: 048
     Dates: start: 20230116

REACTIONS (11)
  - Depression [Unknown]
  - Pain [Unknown]
  - Aphasia [Unknown]
  - Visual impairment [Unknown]
  - Eye disorder [Unknown]
  - Hypoaesthesia [Unknown]
  - Paraesthesia [Unknown]
  - Fatigue [Unknown]
  - Hyperphagia [Unknown]
  - Hypersomnia [Unknown]
  - Disturbance in attention [Unknown]
